FAERS Safety Report 8081593-2 (Version None)
Quarter: 2012Q1

REPORT INFORMATION
  Report Type: 
  Country: None (occurrence: None)
  Receive Date: 20120130
  Receipt Date: 20120123
  Transmission Date: 20120608
  Serious: Yes (Hospitalization)
  Sender: FDA-Public Use
  Company Number: PL-JNJFOC-20120111001

PATIENT
  Sex: Female
  Weight: 76 kg

DRUGS (7)
  1. NYDRAZID [Concomitant]
     Indication: ILL-DEFINED DISORDER
     Dates: start: 20110601, end: 20111001
  2. ACARD [Concomitant]
     Indication: ILL-DEFINED DISORDER
  3. SPIRONOL [Concomitant]
     Indication: ILL-DEFINED DISORDER
  4. STELARA [Suspect]
     Indication: PSORIASIS
     Route: 058
     Dates: start: 20090527, end: 20111108
  5. PRESTARIUM [Concomitant]
     Indication: ILL-DEFINED DISORDER
  6. SIMVASTATIN [Concomitant]
     Indication: ILL-DEFINED DISORDER
  7. ROSUVASTATIN CALCIUM [Concomitant]
     Indication: ILL-DEFINED DISORDER

REACTIONS (2)
  - HAEMATURIA [None]
  - ABDOMINAL PAIN LOWER [None]
